FAERS Safety Report 22519755 (Version 1)
Quarter: 2023Q2

REPORT INFORMATION
  Report Type: Spontaneous
  Country: IT (occurrence: IT)
  Receive Date: 20230605
  Receipt Date: 20230605
  Transmission Date: 20230722
  Serious: Yes (Hospitalization, Other)
  Sender: FDA-Public Use
  Company Number: None

PATIENT

DRUGS (3)
  1. LAMICTAL [Suspect]
     Active Substance: LAMOTRIGINE
     Indication: Epilepsy
     Dosage: 100 MG, QD, 1 PER DAY
     Route: 048
     Dates: start: 2019, end: 20230525
  2. VALPROATE SODIUM [Suspect]
     Active Substance: VALPROATE SODIUM
     Indication: Epilepsy
     Dosage: 500 MG, BID
     Route: 048
     Dates: start: 2019, end: 20230525
  3. ZONEGRAN [Suspect]
     Active Substance: ZONISAMIDE
     Indication: Epilepsy
     Dosage: 100 MG, BID
     Route: 048
     Dates: start: 2019, end: 20230525

REACTIONS (4)
  - Epilepsy [Recovering/Resolving]
  - Subdural haematoma [Recovering/Resolving]
  - Head injury [Recovering/Resolving]
  - Drug ineffective [Recovering/Resolving]

NARRATIVE: CASE EVENT DATE: 20230414
